FAERS Safety Report 10156114 (Version 1)
Quarter: 2014Q2

REPORT INFORMATION
  Report Type: Spontaneous
  Country: CN (occurrence: CN)
  Receive Date: 20140506
  Receipt Date: 20140506
  Transmission Date: 20141212
  Serious: Yes (Death, Other)
  Sender: FDA-Public Use
  Company Number: PHHY2014CN054418

PATIENT
  Age: 18 Year
  Sex: Male

DRUGS (4)
  1. CICLOSPORIN [Suspect]
     Indication: GRAFT VERSUS HOST DISEASE
  2. METHOTREXATE [Suspect]
     Indication: LEUKAEMIA RECURRENT PROPHYLAXIS
     Dosage: UNK
     Route: 037
  3. DEXAMETHASONE [Suspect]
     Indication: LEUKAEMIA RECURRENT PROPHYLAXIS
     Route: 037
  4. CYTOSINE ARABINOSIDE [Suspect]
     Indication: LEUKAEMIA RECURRENT PROPHYLAXIS
     Route: 037

REACTIONS (2)
  - Acute lymphocytic leukaemia recurrent [Fatal]
  - Acute graft versus host disease [Unknown]
